FAERS Safety Report 25218768 (Version 1)
Quarter: 2025Q2

REPORT INFORMATION
  Report Type: Spontaneous
  Country: US (occurrence: US)
  Receive Date: 20250421
  Receipt Date: 20250421
  Transmission Date: 20250716
  Serious: Yes (Other)
  Sender: DR REDDYS
  Company Number: None

PATIENT
  Age: 75 Year
  Sex: Male

DRUGS (3)
  1. GEMCITABINE [Suspect]
     Active Substance: GEMCITABINE
     Indication: Bladder cancer
     Route: 043
  2. DOCETAXEL [Concomitant]
     Active Substance: DOCETAXEL
     Indication: Bladder cancer
  3. NIFEDIPINE [Concomitant]
     Active Substance: NIFEDIPINE
     Indication: Product used for unknown indication

REACTIONS (1)
  - Renal-limited thrombotic microangiopathy [Unknown]
